FAERS Safety Report 12825073 (Version 1)
Quarter: 2016Q4

REPORT INFORMATION
  Report Type: Report from Study
  Country: AU (occurrence: AU)
  Receive Date: 20161007
  Receipt Date: 20161007
  Transmission Date: 20170207
  Serious: Yes (Hospitalization)
  Sender: FDA-Public Use
  Company Number: AU-IPCA LABORATORIES LIMITED-IPC201609-000840

PATIENT

DRUGS (9)
  1. DILTIAZEM. [Suspect]
     Active Substance: DILTIAZEM
  2. LANSOPRAZOLE. [Suspect]
     Active Substance: LANSOPRAZOLE
  3. SULFAMETHOXAZOLE-TRIMETHOPRIM [Suspect]
     Active Substance: SULFAMETHOXAZOLE\TRIMETHOPRIM
  4. SERTRALINE [Suspect]
     Active Substance: SERTRALINE HYDROCHLORIDE
  5. ESOMEPRAZOLE [Suspect]
     Active Substance: ESOMEPRAZOLE
  6. DOXYCYCLINE. [Suspect]
     Active Substance: DOXYCYCLINE
  7. ATENOLOL. [Suspect]
     Active Substance: ATENOLOL
  8. ACETYLSALICYLIC ACID [Suspect]
     Active Substance: ASPIRIN
  9. PARACETAMOL [Suspect]
     Active Substance: ACETAMINOPHEN

REACTIONS (1)
  - Drug-induced liver injury [Unknown]
